FAERS Safety Report 14943578 (Version 1)
Quarter: 2018Q2

REPORT INFORMATION
  Report Type: Report from Study
  Country: DE (occurrence: DE)
  Receive Date: 20180528
  Receipt Date: 20180528
  Transmission Date: 20180711
  Serious: Yes (Death, Life-Threatening, Hospitalization)
  Sender: FDA-Public Use
  Company Number: PHHY2016DE149213

PATIENT
  Age: 61 Year
  Sex: Male
  Weight: 100 kg

DRUGS (3)
  1. CARVEDILOL. [Concomitant]
     Active Substance: CARVEDILOL
     Indication: CARDIAC FAILURE
     Dosage: 50 MG, QD
     Route: 048
     Dates: start: 2015
  2. TORASEMIDE [Concomitant]
     Active Substance: TORSEMIDE
     Indication: CARDIAC FAILURE
     Dosage: 10 MG, QD
     Route: 048
     Dates: start: 2014
  3. ENTRESTO [Suspect]
     Active Substance: SACUBITRIL\VALSARTAN
     Indication: CARDIAC FAILURE
     Dosage: 50 MG, QD (24/26 MG)
     Route: 048
     Dates: start: 20160825

REACTIONS (4)
  - Prescribed underdose [Unknown]
  - Cardiac failure [Fatal]
  - Cardiorenal syndrome [Fatal]
  - Renal failure [Fatal]

NARRATIVE: CASE EVENT DATE: 20161009
